FAERS Safety Report 20157422 (Version 26)
Quarter: 2025Q4

REPORT INFORMATION
  Report Type: Spontaneous
  Country: EU (occurrence: EU)
  Receive Date: 20211207
  Receipt Date: 20251105
  Transmission Date: 20260118
  Serious: Yes (Death, Hospitalization, Other)
  Sender: ORGANON
  Company Number: EU-BAYER-2015-453122

PATIENT
  Age: 71 Year
  Sex: Male

DRUGS (660)
  1. ZOCOR [Suspect]
     Active Substance: SIMVASTATIN
     Indication: Product used for unknown indication
     Dosage: 20 MG,QD
  2. SIMVASTATIN [Suspect]
     Active Substance: SIMVASTATIN
     Indication: Product used for unknown indication
     Dosage: 20 MILLIGRAM, QD
  3. SIMVASTATIN [Suspect]
     Active Substance: SIMVASTATIN
     Dosage: FREQUENCY TIME: 1 FREQUENCY TIME UNIT: DAYS
  4. SIMVASTATIN [Suspect]
     Active Substance: SIMVASTATIN
     Dosage: 20 MILLIGRAM, QD
  5. SIMVASTATIN [Suspect]
     Active Substance: SIMVASTATIN
     Dosage: 20 MILLIGRAM, QD
  6. SIMVASTATIN [Suspect]
     Active Substance: SIMVASTATIN
     Dosage: FREQUENCY TIME: 1 FREQUENCY TIME UNIT: DAYS
  7. SIMVASTATIN [Suspect]
     Active Substance: SIMVASTATIN
     Dosage: 20 MILLIGRAM, QD
  8. SIMVASTATIN [Suspect]
     Active Substance: SIMVASTATIN
     Dosage: 20 MILLIGRAM, QD
  9. MIANSERIN HYDROCHLORIDE [Suspect]
     Active Substance: MIANSERIN HYDROCHLORIDE
     Dosage: 60 MG, QD
  10. MIANSERIN HYDROCHLORIDE [Suspect]
     Active Substance: MIANSERIN HYDROCHLORIDE
     Dosage: 60 MG, QD
  11. MIANSERIN HYDROCHLORIDE [Suspect]
     Active Substance: MIANSERIN HYDROCHLORIDE
     Dosage: 60 MG, QD
  12. MIANSERIN HYDROCHLORIDE [Suspect]
     Active Substance: MIANSERIN HYDROCHLORIDE
     Dosage: 60 MG, QD
  13. MIANSERIN HYDROCHLORIDE [Suspect]
     Active Substance: MIANSERIN HYDROCHLORIDE
     Dosage: 60 MG, QD
  14. MIANSERIN HYDROCHLORIDE [Suspect]
     Active Substance: MIANSERIN HYDROCHLORIDE
     Dosage: 60 MG, QD
  15. TRIHEXYPHENIDYL HYDROCHLORIDE [Suspect]
     Active Substance: TRIHEXYPHENIDYL HYDROCHLORIDE
     Indication: Product used for unknown indication
     Dosage: 1 MILLIGRAM, QD
  16. TRIHEXYPHENIDYL HYDROCHLORIDE [Suspect]
     Active Substance: TRIHEXYPHENIDYL HYDROCHLORIDE
     Indication: Product used for unknown indication
     Dosage: 1 DOSAGE FORM, QD
  17. TRIHEXYPHENIDYL HYDROCHLORIDE [Suspect]
     Active Substance: TRIHEXYPHENIDYL HYDROCHLORIDE
     Dosage: UNK
     Route: 065
  18. TRIHEXYPHENIDYL HYDROCHLORIDE [Suspect]
     Active Substance: TRIHEXYPHENIDYL HYDROCHLORIDE
     Dosage: 1 MILLIGRAM, QD
  19. TRIHEXYPHENIDYL HYDROCHLORIDE [Suspect]
     Active Substance: TRIHEXYPHENIDYL HYDROCHLORIDE
     Dosage: 1 DOSAGE FORM, QD
  20. TRIHEXYPHENIDYL HYDROCHLORIDE [Suspect]
     Active Substance: TRIHEXYPHENIDYL HYDROCHLORIDE
     Dosage: 1 DOSAGE FORM, QD
  21. TRIHEXYPHENIDYL HYDROCHLORIDE [Suspect]
     Active Substance: TRIHEXYPHENIDYL HYDROCHLORIDE
     Dosage: 1 MILLIGRAM, QD
  22. ZOPICLONE [Suspect]
     Active Substance: ZOPICLONE
     Indication: Product used for unknown indication
     Dosage: 15 MG, QD
  23. ZOPICLONE [Suspect]
     Active Substance: ZOPICLONE
     Indication: Product used for unknown indication
     Dosage: 15 MG, QD
  24. ZOPICLONE [Suspect]
     Active Substance: ZOPICLONE
     Dosage: 15 MG, QD
  25. ZOPICLONE [Suspect]
     Active Substance: ZOPICLONE
     Dosage: 15 MG, QD
  26. ALBUTEROL [Suspect]
     Active Substance: ALBUTEROL
     Indication: Product used for unknown indication
     Dosage: UNK
  27. ALBUTEROL [Suspect]
     Active Substance: ALBUTEROL
     Dosage: UNK
  28. ALBUTEROL [Suspect]
     Active Substance: ALBUTEROL
     Dosage: UNK
  29. ALBUTEROL [Suspect]
     Active Substance: ALBUTEROL
     Dosage: 2 DOSAGE FORM, 1/DAY
  30. ALBUTEROL [Suspect]
     Active Substance: ALBUTEROL
     Dosage: 1 DF, BID
  31. ALBUTEROL [Suspect]
     Active Substance: ALBUTEROL
     Dosage: 2.000DF QD
  32. ALBUTEROL [Suspect]
     Active Substance: ALBUTEROL
     Dosage: 2 DOSAGE FORM, QD
  33. ALBUTEROL [Suspect]
     Active Substance: ALBUTEROL
     Dosage: 2 DF QD
  34. CLOBAZAM [Suspect]
     Active Substance: CLOBAZAM
     Indication: Product used for unknown indication
     Dosage: 10 MG, QD (TID,10 MG, 3X/DAY (ONCE EVERY 8HOURS)
  35. CLOBAZAM [Suspect]
     Active Substance: CLOBAZAM
     Indication: Product used for unknown indication
     Dosage: 90 MILLIGRAM, QD
  36. CLOBAZAM [Suspect]
     Active Substance: CLOBAZAM
     Dosage: 30 MILLIGRAM, QD (10 MG, 3X/DAY (ONCE EVERY 8HOURS)
  37. CLOBAZAM [Suspect]
     Active Substance: CLOBAZAM
     Dosage: 90 MILLIGRAM, QD
  38. CLOBAZAM [Suspect]
     Active Substance: CLOBAZAM
     Dosage: 20 MG, QD
  39. CLOBAZAM [Suspect]
     Active Substance: CLOBAZAM
     Dosage: 30 MILLIGRAM, QD
  40. CLOBAZAM [Suspect]
     Active Substance: CLOBAZAM
     Dosage: 4 MILLIGRAM, QD
  41. CLOBAZAM [Suspect]
     Active Substance: CLOBAZAM
     Dosage: 10 MILLIGRAM, QD
  42. CLOBAZAM [Suspect]
     Active Substance: CLOBAZAM
     Dosage: 30 MG, QD
  43. CLOBAZAM [Suspect]
     Active Substance: CLOBAZAM
     Dosage: 30 MG, QD
  44. CLOBAZAM [Suspect]
     Active Substance: CLOBAZAM
     Dosage: 90 MG, QD
  45. CLOBAZAM [Suspect]
     Active Substance: CLOBAZAM
     Dosage: 10 MG, QD (TID,10 MG, 3X/DAY (ONCE EVERY 8HOURS) LESS THAN/)
  46. CLOBAZAM [Suspect]
     Active Substance: CLOBAZAM
     Dosage: 10 MG, 3X/DAY (ONCE EVERY 8HOURS)
  47. CLOBAZAM [Suspect]
     Active Substance: CLOBAZAM
     Dosage: 90 MILLIGRAM, QD
  48. CLOBAZAM [Suspect]
     Active Substance: CLOBAZAM
     Dosage: UNK, TID
  49. CLOBAZAM [Suspect]
     Active Substance: CLOBAZAM
     Dosage: UNK UNK, Q8H
  50. CLOBAZAM [Suspect]
     Active Substance: CLOBAZAM
     Dosage: UNK UNK, Q8H
  51. CLOBAZAM [Suspect]
     Active Substance: CLOBAZAM
     Dosage: UNK UNK, QD
  52. CLOBAZAM [Suspect]
     Active Substance: CLOBAZAM
     Dosage: UNK UNK, QD
  53. CLOBAZAM [Suspect]
     Active Substance: CLOBAZAM
     Dosage: 20 MG, QD
  54. CLOBAZAM [Suspect]
     Active Substance: CLOBAZAM
     Dosage: 4 MG, QD
  55. CLOBAZAM [Suspect]
     Active Substance: CLOBAZAM
     Dosage: 30 MG, QD
  56. CLOBAZAM [Suspect]
     Active Substance: CLOBAZAM
     Dosage: 20 MG, QD
  57. CLOBAZAM [Suspect]
     Active Substance: CLOBAZAM
     Dosage: 4 MG, QD
  58. CLOBAZAM [Suspect]
     Active Substance: CLOBAZAM
     Dosage: 90 MG, QD
  59. CLOBAZAM [Suspect]
     Active Substance: CLOBAZAM
     Dosage: 30 MG, QD
  60. CLOBAZAM [Suspect]
     Active Substance: CLOBAZAM
     Dosage: 10 MG, QD (TID,10 MG, 3X/DAY (ONCE EVERY 8HOURS){/)
  61. CLOBAZAM [Suspect]
     Active Substance: CLOBAZAM
     Dosage: 90 MILLIGRAM, QD
  62. CLOBAZAM [Suspect]
     Active Substance: CLOBAZAM
     Dosage: FREQUENCY: 3 FREQUENCY TIME : 1 FREQUENCY TIME UNIT: DAYS
  63. CLOBAZAM [Suspect]
     Active Substance: CLOBAZAM
     Dosage: FREQUENCY TIME: 8 FREQUENCY TIME UNIT: HOURS
  64. CLOBAZAM [Suspect]
     Active Substance: CLOBAZAM
     Dosage: FREQUENCY TIME: 1 FREQUENCY TIME UNIT: DAYS
  65. CLOBAZAM [Suspect]
     Active Substance: CLOBAZAM
     Dosage: FREQUENCY TIME: 1 FREQUENCY TIME UNIT: DAYS
  66. CLOBAZAM [Suspect]
     Active Substance: CLOBAZAM
     Dosage: FREQUENCY: 3 FREQUENCY TIME: 1 FREQUENCY TIME UNIT: DAYS
  67. CLOBAZAM [Suspect]
     Active Substance: CLOBAZAM
     Dosage: FREQUENCY TIME: 8 FREQUENCY TIME UNIT: HOURS
  68. CLOBAZAM [Suspect]
     Active Substance: CLOBAZAM
     Dosage: FREQUENCY TIME: 1 FREQUENCY TIME UNIT: DAYS
  69. CLOBAZAM [Suspect]
     Active Substance: CLOBAZAM
     Dosage: FREQUENCY TIME: 1 FREQUENCY TIME UNIT: DAYS
  70. CLOBAZAM [Suspect]
     Active Substance: CLOBAZAM
     Dosage: FREQUENCY TIME: 8 FREQUENCY TIME UNIT: HOURS
  71. CLOBAZAM [Suspect]
     Active Substance: CLOBAZAM
     Dosage: FREQUENCY TIME: 8 FREQUENCY TIME UNIT: HOURS
  72. CLOBAZAM [Suspect]
     Active Substance: CLOBAZAM
     Dosage: FREQUENCY: 3 FREQUENCY TIME: 1 FREQUENCY TIME UNIT: DAYS
  73. CLOBAZAM [Suspect]
     Active Substance: CLOBAZAM
     Dosage: FREQUENCY TIME: 1 FREQUENCY TIME UNIT: DAYS
  74. CLOBAZAM [Suspect]
     Active Substance: CLOBAZAM
     Dosage: FREQUENCY TIME: 1 FREQUENCY TIME UNIT: DAYS
  75. CLOBAZAM [Suspect]
     Active Substance: CLOBAZAM
     Dosage: FREQUENCY TIME: 8 FREQUENCY TIME UNIT: HOURS
  76. CLOBAZAM [Suspect]
     Active Substance: CLOBAZAM
     Dosage: FREQUENCY TIME: 8 FREQUENCY TIME UNIT: HOURS
  77. CLOBAZAM [Suspect]
     Active Substance: CLOBAZAM
     Dosage: TIME INTERVAL: 0.33333333 DAYS: FREQUENCY: 3 FREQUENCY TIME: 1 FREQUENCY TIME UNIT: DAYS
  78. PROPRANOLOL [Suspect]
     Active Substance: PROPRANOLOL HYDROCHLORIDE
     Indication: Product used for unknown indication
     Dosage: 20 MG,QD
  79. PROPRANOLOL [Suspect]
     Active Substance: PROPRANOLOL HYDROCHLORIDE
     Indication: Product used for unknown indication
     Dosage: 100 MILLIGRAM, Q12H
  80. PROPRANOLOL [Suspect]
     Active Substance: PROPRANOLOL HYDROCHLORIDE
     Indication: Product used for unknown indication
     Dosage: 100 MILLIGRAM, BID
  81. PROPRANOLOL [Suspect]
     Active Substance: PROPRANOLOL HYDROCHLORIDE
     Dosage: 100 MILLIGRAM, BID
  82. PROPRANOLOL [Suspect]
     Active Substance: PROPRANOLOL HYDROCHLORIDE
     Dosage: 20 MILLIGRAM, QD
  83. PROPRANOLOL [Suspect]
     Active Substance: PROPRANOLOL HYDROCHLORIDE
     Dosage: UNK, Q12H
  84. PROPRANOLOL [Suspect]
     Active Substance: PROPRANOLOL HYDROCHLORIDE
     Dosage: FREQUENCY TIME: 12 FREQUENCY TIME UNIT: HOURS
  85. PROPRANOLOL [Suspect]
     Active Substance: PROPRANOLOL HYDROCHLORIDE
     Dosage: 20 MG,QD
  86. ACETAMINOPHEN [Suspect]
     Active Substance: ACETAMINOPHEN
     Indication: Product used for unknown indication
     Dosage: 1000 MG, 2X/DAY (ONCE EVERY 12HOURS)
  87. ACETAMINOPHEN [Suspect]
     Active Substance: ACETAMINOPHEN
     Dosage: 100 MILLIGRAM,
  88. ACETAMINOPHEN [Suspect]
     Active Substance: ACETAMINOPHEN
     Dosage: 1000 MG, 2X/DAY (ONCE EVERY 12HOURS)
  89. ACETAMINOPHEN [Suspect]
     Active Substance: ACETAMINOPHEN
     Dosage: 200 MG, BID
  90. ACETAMINOPHEN [Suspect]
     Active Substance: ACETAMINOPHEN
     Dosage: 200 MG, BID
  91. ACETAMINOPHEN [Suspect]
     Active Substance: ACETAMINOPHEN
     Dosage: BID2X/DAY (ONCE EVERY 12HOURS) LESS THAN/
  92. ACETAMINOPHEN [Suspect]
     Active Substance: ACETAMINOPHEN
     Dosage: 1000 MILLIGRAM, BID (1000 MG, 2X/DAY (ONCE EVERY 12HOURS)
  93. ACETAMINOPHEN [Suspect]
     Active Substance: ACETAMINOPHEN
     Dosage: 200 MILLIGRAM, BID
  94. ACETAMINOPHEN [Suspect]
     Active Substance: ACETAMINOPHEN
     Dosage: 400 MILLIGRAM (200 MG, BID)
  95. ACETAMINOPHEN [Suspect]
     Active Substance: ACETAMINOPHEN
     Dosage: 200 MILLIGRAMS, BID
  96. ACETAMINOPHEN [Suspect]
     Active Substance: ACETAMINOPHEN
     Dosage: 100 MILLIGRAM
  97. ACETAMINOPHEN [Suspect]
     Active Substance: ACETAMINOPHEN
     Dosage: 2000 MILLIGRAM, QD
  98. ACETAMINOPHEN [Suspect]
     Active Substance: ACETAMINOPHEN
     Dosage: 1000 MILLIGRAM, BID (ONCE EVERY 12HOURS)
  99. ACETAMINOPHEN [Suspect]
     Active Substance: ACETAMINOPHEN
     Dosage: 200 MG, BID
  100. ACETAMINOPHEN [Suspect]
     Active Substance: ACETAMINOPHEN
     Dosage: 2000 MG, QD (TABLET)
  101. ACETAMINOPHEN [Suspect]
     Active Substance: ACETAMINOPHEN
     Dosage: 1000 MG, Q12H (1000 MG, 2X/DAY (ONCE EVERY 12HOURS))
     Route: 065
  102. ACETAMINOPHEN [Suspect]
     Active Substance: ACETAMINOPHEN
     Dosage: 200 MG, BID
  103. ACETAMINOPHEN [Suspect]
     Active Substance: ACETAMINOPHEN
     Dosage: 100 MG, BID (ONCE EVERY 12HOURS)
  104. ACETAMINOPHEN [Suspect]
     Active Substance: ACETAMINOPHEN
     Dosage: 200 MG, QD
     Route: 065
  105. ACETAMINOPHEN [Suspect]
     Active Substance: ACETAMINOPHEN
     Dosage: 1 DOSAGE FORM, Q12H (1000 MG, 2X/DAY (ONCE EVERY 12HOURS)
  106. ACETAMINOPHEN [Suspect]
     Active Substance: ACETAMINOPHEN
     Dosage: 400 MG, QD (200 MG, BID)
  107. ACETAMINOPHEN [Suspect]
     Active Substance: ACETAMINOPHEN
     Dosage: 100 MILLIGRAM, 2/DAY
  108. ACETAMINOPHEN [Suspect]
     Active Substance: ACETAMINOPHEN
     Dosage: 100 MG, Q12H
  109. ACETAMINOPHEN [Suspect]
     Active Substance: ACETAMINOPHEN
     Dosage: 200 MG, Q12H
  110. ACETAMINOPHEN [Suspect]
     Active Substance: ACETAMINOPHEN
     Dosage: 1000 MG, Q12H (1000 MG, 2X/DAY (ONCE EVERY 12HOURS))
  111. ACETAMINOPHEN [Suspect]
     Active Substance: ACETAMINOPHEN
     Dosage: 2000 MG, QD (TABLET)
  112. ACETAMINOPHEN [Suspect]
     Active Substance: ACETAMINOPHEN
     Dosage: 200 MG, QD
  113. ACETAMINOPHEN [Suspect]
     Active Substance: ACETAMINOPHEN
     Dosage: 1 DOSAGE FORM, Q12H (1000 MG, 2X/DAY (ONCE EVERY 12HOURS)
  114. ACETAMINOPHEN [Suspect]
     Active Substance: ACETAMINOPHEN
     Dosage: 200 MILLIGRAM, QD (100 MG, BID (ONCE EVERY 12HOURS))
  115. ACETAMINOPHEN [Suspect]
     Active Substance: ACETAMINOPHEN
     Dosage: 200 MG QD
  116. ACETAMINOPHEN [Suspect]
     Active Substance: ACETAMINOPHEN
     Dosage: 1000 MG, 2X/DAY (ONCE EVERY 12HOURS)
  117. ACETAMINOPHEN [Suspect]
     Active Substance: ACETAMINOPHEN
     Dosage: 2000 MG, QD (TABLET)
  118. ACETAMINOPHEN [Suspect]
     Active Substance: ACETAMINOPHEN
     Dosage: 200 MG, QD
  119. ACETAMINOPHEN [Suspect]
     Active Substance: ACETAMINOPHEN
     Dosage: 100 MG, BID (ONCE EVERY 12HOURS)
  120. ACETAMINOPHEN [Suspect]
     Active Substance: ACETAMINOPHEN
     Dosage: 200 MG, BID
  121. ACETAMINOPHEN [Suspect]
     Active Substance: ACETAMINOPHEN
     Dosage: 100 MILLIGRAM, 2/DAY
  122. ACETAMINOPHEN [Suspect]
     Active Substance: ACETAMINOPHEN
     Dosage: 1 DOSAGE FORM, Q12H (1000 MG, 2X/DAY (ONCE EVERY 12HOURS)
  123. ACETAMINOPHEN [Suspect]
     Active Substance: ACETAMINOPHEN
     Dosage: 1 DOSAGE FORM, Q12H (1000 MG, 2X/DAY (ONCE EVERY 12HOURS)
  124. ACETAMINOPHEN [Suspect]
     Active Substance: ACETAMINOPHEN
     Dosage: 200 MG, BID
  125. ACETAMINOPHEN [Suspect]
     Active Substance: ACETAMINOPHEN
     Dosage: 100 MG, BID (ONCE EVERY 12HOURS)
  126. ACETAMINOPHEN [Suspect]
     Active Substance: ACETAMINOPHEN
     Dosage: 400 MILLIGRAM (200 MG, BID)
  127. ACETAMINOPHEN [Suspect]
     Active Substance: ACETAMINOPHEN
     Dosage: 1000 MG, 2X/DAY (ONCE EVERY 12HOURS)
  128. ACETAMINOPHEN [Suspect]
     Active Substance: ACETAMINOPHEN
     Dosage: 200 MILLIGRAM, QD (100 MG, BID (ONCE EVERY 12HOURS))
  129. RIVOTRIL [Suspect]
     Active Substance: CLONAZEPAM
     Indication: Product used for unknown indication
     Dosage: 4 MG, QD
  130. RIVOTRIL [Suspect]
     Active Substance: CLONAZEPAM
     Indication: Product used for unknown indication
     Dosage: UNK
  131. RIVOTRIL [Suspect]
     Active Substance: CLONAZEPAM
     Dosage: 4 MG, QD
  132. POLYETHYLENE GLYCOL 3350 [Suspect]
     Active Substance: POLYETHYLENE GLYCOL 3350
     Indication: Product used for unknown indication
     Dosage: 2 DF,QD
  133. POLYETHYLENE GLYCOL 3350 [Suspect]
     Active Substance: POLYETHYLENE GLYCOL 3350
     Indication: Product used for unknown indication
     Dosage: 2 DF,QD
     Route: 065
  134. POLYETHYLENE GLYCOL 3350 [Suspect]
     Active Substance: POLYETHYLENE GLYCOL 3350
     Dosage: 2 DOSAGE FORM, QD
  135. SEREVENT DISKUS [Suspect]
     Active Substance: SALMETEROL XINAFOATE
     Indication: Product used for unknown indication
     Dosage: 2 DF, BID
     Route: 065
  136. SEREVENT DISKUS [Suspect]
     Active Substance: SALMETEROL XINAFOATE
     Dosage: 1 DF,BID (1 PUFF) (ONCE EVERY 12HOURS)
  137. SEREVENT DISKUS [Suspect]
     Active Substance: SALMETEROL XINAFOATE
     Dosage: 1 DF,BID (1 PUFF) (ONCE EVERY 12HOURS)
  138. SEREVENT DISKUS [Suspect]
     Active Substance: SALMETEROL XINAFOATE
     Dosage: 1 DF,BID (1 PUFF) (ONCE EVERY 12HOURS)
  139. SEREVENT DISKUS [Suspect]
     Active Substance: SALMETEROL XINAFOATE
     Dosage: 1 DF,BID (1 PUFF) (ONCE EVERY 12HOURS)
  140. SEREVENT DISKUS [Suspect]
     Active Substance: SALMETEROL XINAFOATE
     Dosage: 2 DF, BID(1 DOSAGE FORM, BID ((1 PUFF) (ONCE EVERY 12HOURS)
  141. SEREVENT DISKUS [Suspect]
     Active Substance: SALMETEROL XINAFOATE
     Dosage: 2 DF, Q12H
  142. SEREVENT DISKUS [Suspect]
     Active Substance: SALMETEROL XINAFOATE
     Dosage: 1 DOSAGE FORM, Q12H (2 DF, BID)
     Route: 065
  143. SEREVENT DISKUS [Suspect]
     Active Substance: SALMETEROL XINAFOATE
     Dosage: 1 DF,BID (1 PUFF) (ONCE EVERY 12HOURS)
  144. SEREVENT DISKUS [Suspect]
     Active Substance: SALMETEROL XINAFOATE
     Dosage: 1 DF,BID (1 PUFF) (ONCE EVERY 12HOURS)
  145. SEREVENT DISKUS [Suspect]
     Active Substance: SALMETEROL XINAFOATE
     Dosage: 1 DF,BID (1 PUFF) (ONCE EVERY 12HOURS)
  146. SEREVENT DISKUS [Suspect]
     Active Substance: SALMETEROL XINAFOATE
     Dosage: 4 DOSAGE FORM, QD (2F, BID)
     Route: 065
  147. SEREVENT DISKUS [Suspect]
     Active Substance: SALMETEROL XINAFOATE
     Dosage: 1 DF,BID (1 PUFF) (ONCE EVERY 12HOURS)
  148. SEREVENT DISKUS [Suspect]
     Active Substance: SALMETEROL XINAFOATE
     Dosage: 2 DF, BID
  149. SEREVENT DISKUS [Suspect]
     Active Substance: SALMETEROL XINAFOATE
     Dosage: 1 DF,BID (1 PUFF) (ONCE EVERY 12HOURS)
  150. SEREVENT DISKUS [Suspect]
     Active Substance: SALMETEROL XINAFOATE
     Dosage: 2 DOSAGE FORM, QD
     Route: 065
  151. LASIX [Suspect]
     Active Substance: FUROSEMIDE
     Indication: Product used for unknown indication
     Dosage: 40 MG,QD
  152. LASIX [Suspect]
     Active Substance: FUROSEMIDE
     Dosage: 40 MG,QD
  153. LASIX [Suspect]
     Active Substance: FUROSEMIDE
     Dosage: 40 MG,QD
  154. LASIX [Suspect]
     Active Substance: FUROSEMIDE
     Dosage: 40 MILLIGRAM, 1/DAY
  155. LASIX [Suspect]
     Active Substance: FUROSEMIDE
     Dosage: 40 MILLIGRAM, 1/DAY
  156. LASIX [Suspect]
     Active Substance: FUROSEMIDE
     Dosage: 40 MILLIGRAM, QD
  157. LASIX [Suspect]
     Active Substance: FUROSEMIDE
     Dosage: 40 MILLIGRAM, 1/DAY
  158. LASIX [Suspect]
     Active Substance: FUROSEMIDE
     Dosage: 40 MILLIGRAM, 1/DAY
  159. LASIX [Suspect]
     Active Substance: FUROSEMIDE
     Dosage: 40 MILLIGRAM, 1/DAY
  160. LASIX [Suspect]
     Active Substance: FUROSEMIDE
     Dosage: 40 MILLIGRAM, 1/DAY
  161. ALTACE [Suspect]
     Active Substance: RAMIPRIL
     Indication: Product used for unknown indication
     Dosage: 5 MG QD
  162. ALTACE [Suspect]
     Active Substance: RAMIPRIL
     Indication: Product used for unknown indication
     Dosage: 10 MG
  163. ALTACE [Suspect]
     Active Substance: RAMIPRIL
     Dosage: 5 MG, QD
  164. ALTACE [Suspect]
     Active Substance: RAMIPRIL
     Dosage: 10.000MG
  165. ALTACE [Suspect]
     Active Substance: RAMIPRIL
     Dosage: UNK UNK, QD
  166. ALTACE [Suspect]
     Active Substance: RAMIPRIL
     Dosage: 5 MG QD
  167. ALTACE [Suspect]
     Active Substance: RAMIPRIL
     Dosage: 5 MG, QD
  168. ALTACE [Suspect]
     Active Substance: RAMIPRIL
     Dosage: 10 MG
  169. ALTACE [Suspect]
     Active Substance: RAMIPRIL
     Dosage: FREQUENCY TIME: 1 FREQUENCY TIME UNIT: DAYS
  170. PIPAMPERONE [Suspect]
     Active Substance: PIPAMPERONE
     Indication: Product used for unknown indication
     Dosage: 20 MG, QD
  171. PIPAMPERONE [Suspect]
     Active Substance: PIPAMPERONE
     Indication: Product used for unknown indication
     Dosage: 20 MG, QD
  172. PIPAMPERONE [Suspect]
     Active Substance: PIPAMPERONE
     Dosage: 20 MG, QD
  173. PIPAMPERONE [Suspect]
     Active Substance: PIPAMPERONE
     Dosage: 20 MG, QD
  174. ESOMEPRAZOLE MAGNESIUM [Suspect]
     Active Substance: ESOMEPRAZOLE MAGNESIUM
     Indication: Product used for unknown indication
     Dosage: 20 MG, QD
  175. ESOMEPRAZOLE MAGNESIUM [Suspect]
     Active Substance: ESOMEPRAZOLE MAGNESIUM
     Indication: Product used for unknown indication
     Dosage: 20 MG, QD
  176. ESOMEPRAZOLE MAGNESIUM [Suspect]
     Active Substance: ESOMEPRAZOLE MAGNESIUM
     Indication: Product used for unknown indication
     Dosage: 20 MILLIGRAM, QD
  177. ESOMEPRAZOLE MAGNESIUM [Suspect]
     Active Substance: ESOMEPRAZOLE MAGNESIUM
     Dosage: 20 MG, QD
  178. ESOMEPRAZOLE MAGNESIUM [Suspect]
     Active Substance: ESOMEPRAZOLE MAGNESIUM
     Dosage: 20 MG, QD
  179. ESOMEPRAZOLE MAGNESIUM [Suspect]
     Active Substance: ESOMEPRAZOLE MAGNESIUM
     Dosage: 20 MG, QD
  180. ESOMEPRAZOLE MAGNESIUM [Suspect]
     Active Substance: ESOMEPRAZOLE MAGNESIUM
     Dosage: 20 MG, QD
  181. ESOMEPRAZOLE MAGNESIUM [Suspect]
     Active Substance: ESOMEPRAZOLE MAGNESIUM
     Dosage: 20 MG, QD
  182. OMEPRAZOLE [Suspect]
     Active Substance: OMEPRAZOLE
     Indication: Product used for unknown indication
     Dosage: 20 MG, DAILY
  183. OMEPRAZOLE [Suspect]
     Active Substance: OMEPRAZOLE
     Indication: Product used for unknown indication
     Dosage: 20 MG, DAILY
  184. OMEPRAZOLE [Suspect]
     Active Substance: OMEPRAZOLE
     Dosage: 20 MG, DAILY
  185. OMEPRAZOLE [Suspect]
     Active Substance: OMEPRAZOLE
     Dosage: 20 MG, DAILY
  186. NITROGLYCERIN [Suspect]
     Active Substance: NITROGLYCERIN
     Indication: Product used for unknown indication
     Dosage: 10 MG,QD
  187. NITROGLYCERIN [Suspect]
     Active Substance: NITROGLYCERIN
     Dosage: 10 MG,QD
  188. NITROGLYCERIN [Suspect]
     Active Substance: NITROGLYCERIN
     Dosage: UNK
  189. NITROGLYCERIN [Suspect]
     Active Substance: NITROGLYCERIN
     Dosage: 10 MG, QD
     Route: 065
  190. NITROGLYCERIN [Suspect]
     Active Substance: NITROGLYCERIN
     Dosage: 10 MG, QD
     Route: 065
  191. NITROGLYCERIN [Suspect]
     Active Substance: NITROGLYCERIN
     Dosage: 10 MG, QD
     Route: 065
  192. DIACEREIN [Suspect]
     Active Substance: DIACEREIN
     Indication: Product used for unknown indication
     Dosage: 50 MG, BID,  2X/DAY (ONCE EVERY 12HOURS)
  193. DIACEREIN [Suspect]
     Active Substance: DIACEREIN
     Indication: Product used for unknown indication
     Dosage: 100 MG, BID
  194. DIACEREIN [Suspect]
     Active Substance: DIACEREIN
     Dosage: 200 MG, QD
  195. DIACEREIN [Suspect]
     Active Substance: DIACEREIN
     Dosage: 100 MG, BID
  196. DIACEREIN [Suspect]
     Active Substance: DIACEREIN
     Dosage: 200 MG, QD
  197. DIACEREIN [Suspect]
     Active Substance: DIACEREIN
     Dosage: 100 MG, BID
  198. DIACEREIN [Suspect]
     Active Substance: DIACEREIN
     Dosage: 200.000MG QD
  199. DIACEREIN [Suspect]
     Active Substance: DIACEREIN
     Dosage: 50 MG, BID,  2X/DAY (ONCE EVERY 12HOURS)
  200. DIACEREIN [Suspect]
     Active Substance: DIACEREIN
     Dosage: 100 MG, BID
  201. DIACEREIN [Suspect]
     Active Substance: DIACEREIN
     Dosage: 200 MG, QD
  202. DIACEREIN [Suspect]
     Active Substance: DIACEREIN
     Dosage: 50 MG, BID,  2X/DAY (ONCE EVERY 12HOURS)
  203. DIACEREIN [Suspect]
     Active Substance: DIACEREIN
     Dosage: 200 MG, QD
  204. DIACEREIN [Suspect]
     Active Substance: DIACEREIN
     Dosage: 100 MG, BID
  205. DIACEREIN [Suspect]
     Active Substance: DIACEREIN
     Dosage: 100 MG, BID
  206. DIACEREIN [Suspect]
     Active Substance: DIACEREIN
     Dosage: 50 MG, BID,  2X/DAY (ONCE EVERY 12HOURS)
  207. DIACEREIN [Suspect]
     Active Substance: DIACEREIN
     Dosage: 100 MG, BID
  208. ISOPTIN [Suspect]
     Active Substance: VERAPAMIL HYDROCHLORIDE
     Indication: Product used for unknown indication
     Dosage: 240 MG,QD
  209. ISOPTIN [Suspect]
     Active Substance: VERAPAMIL HYDROCHLORIDE
     Dosage: 240 MG,QD
  210. ISOPTIN [Suspect]
     Active Substance: VERAPAMIL HYDROCHLORIDE
     Dosage: 240 MG,QD
  211. CELEBREX [Suspect]
     Active Substance: CELECOXIB
     Indication: Product used for unknown indication
     Dosage: UNK
     Route: 065
  212. CELEBREX [Suspect]
     Active Substance: CELECOXIB
     Indication: Product used for unknown indication
     Dosage: UNKNOWN
  213. CELEBREX [Suspect]
     Active Substance: CELECOXIB
     Dosage: UNK
  214. CELEBREX [Suspect]
     Active Substance: CELECOXIB
     Dosage: UNK
     Route: 065
  215. CELEBREX [Suspect]
     Active Substance: CELECOXIB
     Dosage: UNKNOWN
     Route: 065
  216. CELEBREX [Suspect]
     Active Substance: CELECOXIB
     Dosage: UNK
     Route: 065
  217. CELEBREX [Suspect]
     Active Substance: CELECOXIB
     Dosage: UNK
     Route: 065
  218. CELEBREX [Suspect]
     Active Substance: CELECOXIB
     Dosage: UNK
     Route: 065
  219. CELEBREX [Suspect]
     Active Substance: CELECOXIB
     Dosage: UNK
  220. CELEBREX [Suspect]
     Active Substance: CELECOXIB
     Dosage: UNK
  221. CELEBREX [Suspect]
     Active Substance: CELECOXIB
     Dosage: UNK
  222. CELEBREX [Suspect]
     Active Substance: CELECOXIB
     Dosage: UNK
  223. CELEBREX [Suspect]
     Active Substance: CELECOXIB
     Dosage: UNK
  224. CELEBREX [Suspect]
     Active Substance: CELECOXIB
     Dosage: UNK
  225. CELEBREX [Suspect]
     Active Substance: CELECOXIB
     Indication: Product used for unknown indication
     Dosage: UNK
  226. CELEBREX [Suspect]
     Active Substance: CELECOXIB
     Dosage: UNK
  227. ASPIRIN LYSINE [Suspect]
     Active Substance: ASPIRIN LYSINE
     Indication: Product used for unknown indication
     Dosage: 20 MILLIGRAM, QD
  228. ASPIRIN LYSINE [Suspect]
     Active Substance: ASPIRIN LYSINE
     Dosage: 250 MILLIGRAM, QD
  229. ASPIRIN LYSINE [Suspect]
     Active Substance: ASPIRIN LYSINE
     Dosage: 250 MILLIGRAM, QD
  230. ASPIRIN LYSINE [Suspect]
     Active Substance: ASPIRIN LYSINE
     Dosage: 20 MILLIGRAM, QD
  231. PREDNAZOLINE [Suspect]
     Active Substance: PREDNAZOLINE
     Indication: Product used for unknown indication
     Dosage: 1 DOSAGE FORM, 1/DAY
  232. PREDNAZOLINE [Suspect]
     Active Substance: PREDNAZOLINE
     Indication: Product used for unknown indication
     Dosage: UNK
  233. PREDNAZOLINE [Suspect]
     Active Substance: PREDNAZOLINE
     Dosage: 1 DF, QD (1 PUFF, QD)
  234. PREDNAZOLINE [Suspect]
     Active Substance: PREDNAZOLINE
     Dosage: 1 DOSAGE FORM, 1/DAY
  235. PREDNAZOLINE [Suspect]
     Active Substance: PREDNAZOLINE
     Dosage: 1 DOSAGE FORM, 1/DAY
  236. PREDNAZOLINE [Suspect]
     Active Substance: PREDNAZOLINE
     Dosage: 1 DOSAGE FORM, 1/DAY
  237. PREDNAZOLINE [Suspect]
     Active Substance: PREDNAZOLINE
     Dosage: UNK UNK, QD (1 PUFF QD)
  238. PREDNAZOLINE [Suspect]
     Active Substance: PREDNAZOLINE
     Dosage: UNK, QD (1 PUFF)
  239. PREDNAZOLINE [Suspect]
     Active Substance: PREDNAZOLINE
     Dosage: UNK
  240. PREDNAZOLINE [Suspect]
     Active Substance: PREDNAZOLINE
     Dosage: 1 DOSAGE FORM, 1/DAY
  241. PREDNAZOLINE [Suspect]
     Active Substance: PREDNAZOLINE
     Dosage: 1 DOSAGE FORM, 1/DAY
  242. PREDNAZOLINE [Suspect]
     Active Substance: PREDNAZOLINE
     Dosage: 1 DOSAGE FORM, 1/DAY
  243. PREDNAZOLINE [Suspect]
     Active Substance: PREDNAZOLINE
     Dosage: 1 DOSAGE FORM, 1/DAY
  244. PREDNAZOLINE [Suspect]
     Active Substance: PREDNAZOLINE
     Dosage: UNK DOSAGE FORM, 1/DAY
  245. PREDNAZOLINE [Suspect]
     Active Substance: PREDNAZOLINE
     Dosage: UNK
  246. PREDNAZOLINE [Suspect]
     Active Substance: PREDNAZOLINE
     Dosage: 1 DF, QD
  247. PREDNAZOLINE [Suspect]
     Active Substance: PREDNAZOLINE
     Dosage: 1 DF, QD
  248. PREDNAZOLINE [Suspect]
     Active Substance: PREDNAZOLINE
     Dosage: 1 DOSAGE FORM, 1/DAY
  249. PREDNAZOLINE [Suspect]
     Active Substance: PREDNAZOLINE
     Dosage: 1 DOSAGE FORM, 1/DAY
  250. PREDNAZOLINE [Suspect]
     Active Substance: PREDNAZOLINE
     Dosage: UNK DOSAGE FORM, 1/DAY
  251. PREDNAZOLINE [Suspect]
     Active Substance: PREDNAZOLINE
     Dosage: UNKNOWN
  252. PREDNAZOLINE [Suspect]
     Active Substance: PREDNAZOLINE
     Dosage: 1 DOSAGE FORM, 1/DAY
  253. PREDNAZOLINE [Suspect]
     Active Substance: PREDNAZOLINE
     Dosage: UNK DOSAGE FORM, 1/DAY
  254. PREDNAZOLINE [Suspect]
     Active Substance: PREDNAZOLINE
     Dosage: UNKNOWN
  255. PREDNAZOLINE [Suspect]
     Active Substance: PREDNAZOLINE
     Dosage: 1 DOSAGE FORM, 1/DAY
  256. NITROGLYCERIN [Suspect]
     Active Substance: NITROGLYCERIN
     Indication: Product used for unknown indication
     Dosage: FREQUENCY TIME: 1 FREQUENCY TIME UNIT: DAYS
  257. NITROGLYCERIN [Suspect]
     Active Substance: NITROGLYCERIN
     Indication: Product used for unknown indication
     Dosage: UNK
  258. NITROGLYCERIN [Suspect]
     Active Substance: NITROGLYCERIN
     Dosage: UNK
  259. NITROGLYCERIN [Suspect]
     Active Substance: NITROGLYCERIN
     Dosage: 10 MILLIGRAM, QD
  260. NITROGLYCERIN [Suspect]
     Active Substance: NITROGLYCERIN
     Dosage: UNK UNK, QD
  261. NITROGLYCERIN [Suspect]
     Active Substance: NITROGLYCERIN
     Dosage: UNK
  262. NITROGLYCERIN [Suspect]
     Active Substance: NITROGLYCERIN
     Dosage: UNK
  263. NITROGLYCERIN [Suspect]
     Active Substance: NITROGLYCERIN
     Dosage: FREQUENCY TIME: 1 FREQUENCY TIME UNIT: DAYS
  264. NITROGLYCERIN [Suspect]
     Active Substance: NITROGLYCERIN
     Dosage: 10 MG QD
  265. NITROGLYCERIN [Suspect]
     Active Substance: NITROGLYCERIN
     Dosage: 10 MG QD
  266. NITROGLYCERIN [Suspect]
     Active Substance: NITROGLYCERIN
     Dosage: 10 MG, QD
  267. NITROGLYCERIN [Suspect]
     Active Substance: NITROGLYCERIN
     Dosage: 10 MG, QD
  268. NITROGLYCERIN [Suspect]
     Active Substance: NITROGLYCERIN
     Dosage: 10 MILLIGRAM, QD
  269. NITROGLYCERIN [Suspect]
     Active Substance: NITROGLYCERIN
     Dosage: 10 MG, QD
  270. NITROGLYCERIN [Suspect]
     Active Substance: NITROGLYCERIN
     Dosage: FREQUENCY TIME: 1 FREQUENCY TIME UNIT: DAYS
  271. NITROGLYCERIN [Suspect]
     Active Substance: NITROGLYCERIN
     Dosage: 10 MG, QD
     Route: 065
  272. NITROGLYCERIN [Suspect]
     Active Substance: NITROGLYCERIN
     Dosage: 10 MILLIGRAM, 1/DAY
  273. NITROGLYCERIN [Suspect]
     Active Substance: NITROGLYCERIN
     Dosage: 10 MILLIGRAM, 1/DAY
     Route: 065
  274. NITROGLYCERIN [Suspect]
     Active Substance: NITROGLYCERIN
  275. NITROGLYCERIN [Suspect]
     Active Substance: NITROGLYCERIN
     Dosage: FREQUENCY TIME: 1 FREQUENCY TIME UNIT: DAYS
  276. NITROGLYCERIN [Suspect]
     Active Substance: NITROGLYCERIN
  277. NITROGLYCERIN [Suspect]
     Active Substance: NITROGLYCERIN
     Dosage: FREQUENCY TIME: 1 FREQUENCY TIME UNIT: DAYS
  278. NITROGLYCERIN [Suspect]
     Active Substance: NITROGLYCERIN
     Dosage: 10 MG QD
  279. NITROGLYCERIN [Suspect]
     Active Substance: NITROGLYCERIN
     Dosage: 10 MG QD
  280. ALBUTEROL [Suspect]
     Active Substance: ALBUTEROL
     Indication: Product used for unknown indication
     Dosage: 2 DOSAGE FORM, QD
  281. ALBUTEROL [Suspect]
     Active Substance: ALBUTEROL
     Dosage: UNK
  282. ALBUTEROL [Suspect]
     Active Substance: ALBUTEROL
     Dosage: UNK
  283. ALBUTEROL [Suspect]
     Active Substance: ALBUTEROL
     Dosage: UNK
  284. ALBUTEROL [Suspect]
     Active Substance: ALBUTEROL
     Dosage: UNK
  285. VERAPAMIL HYDROCHLORIDE [Suspect]
     Active Substance: VERAPAMIL HYDROCHLORIDE
     Indication: Product used for unknown indication
     Dosage: 240 MG, QD
  286. VERAPAMIL HYDROCHLORIDE [Suspect]
     Active Substance: VERAPAMIL HYDROCHLORIDE
     Indication: Product used for unknown indication
     Dosage: UNK
  287. VERAPAMIL HYDROCHLORIDE [Suspect]
     Active Substance: VERAPAMIL HYDROCHLORIDE
     Dosage: 240 MILLIGRAM
  288. VERAPAMIL HYDROCHLORIDE [Suspect]
     Active Substance: VERAPAMIL HYDROCHLORIDE
     Dosage: 240 MG, QD
  289. VERAPAMIL HYDROCHLORIDE [Suspect]
     Active Substance: VERAPAMIL HYDROCHLORIDE
     Dosage: UNK UNK, QD
  290. VERAPAMIL HYDROCHLORIDE [Suspect]
     Active Substance: VERAPAMIL HYDROCHLORIDE
     Dosage: 240 MG, QD
  291. VERAPAMIL HYDROCHLORIDE [Suspect]
     Active Substance: VERAPAMIL HYDROCHLORIDE
     Dosage: FREQUENCY TIME: 1 FREQUENCY TIME UNIT: DAYS
  292. VERAPAMIL HYDROCHLORIDE [Suspect]
     Active Substance: VERAPAMIL HYDROCHLORIDE
     Dosage: FREQUENCY TIME: 1 FREQUENCY TIME UNIT:  DAYS
  293. SALMETEROL XINAFOATE [Suspect]
     Active Substance: SALMETEROL XINAFOATE
     Indication: Product used for unknown indication
     Dosage: 2 DOSAGE FORM, QD 1 DF,BID (1 PUFF) (ONCE EVERY 12HOURS)
  294. SALMETEROL XINAFOATE [Suspect]
     Active Substance: SALMETEROL XINAFOATE
     Indication: Product used for unknown indication
     Dosage: 2 DOSAGE FORM, 1/DAY
  295. SALMETEROL XINAFOATE [Suspect]
     Active Substance: SALMETEROL XINAFOATE
     Dosage: 2 DOSAGE FORM, 1/DAY
  296. SALMETEROL XINAFOATE [Suspect]
     Active Substance: SALMETEROL XINAFOATE
     Dosage: UNK, BID (1 PUFF)
  297. SALMETEROL XINAFOATE [Suspect]
     Active Substance: SALMETEROL XINAFOATE
     Dosage: 1 DOSAGE FORM, 2/DAY
  298. SALMETEROL XINAFOATE [Suspect]
     Active Substance: SALMETEROL XINAFOATE
     Dosage: 1 DOSAGE FORM, 2/DAY
  299. SALMETEROL XINAFOATE [Suspect]
     Active Substance: SALMETEROL XINAFOATE
     Dosage: 2 DF, QD (2 DOSAGE FORM, QD 1 DF,BID (1 PUFF) (ONCE EVERY 12HOURS))
  300. SALMETEROL XINAFOATE [Suspect]
     Active Substance: SALMETEROL XINAFOATE
     Dosage: 1 DOSAGE FORM, 2/DAY
  301. SALMETEROL XINAFOATE [Suspect]
     Active Substance: SALMETEROL XINAFOATE
     Dosage: 1 DOSAGE FORM, 2/DAY, 0.50 -DAILY
  302. SALMETEROL XINAFOATE [Suspect]
     Active Substance: SALMETEROL XINAFOATE
     Dosage: 1 DOSAGE FORM, EVERY 12 HRS
  303. SALMETEROL XINAFOATE [Suspect]
     Active Substance: SALMETEROL XINAFOATE
     Dosage: 1 DOSAGE FORM, 2/DAY, 0.50 - DAILY
  304. SALMETEROL XINAFOATE [Suspect]
     Active Substance: SALMETEROL XINAFOATE
     Dosage: 1 DOSAGE FORM, EVERY 12 HRS
  305. SALMETEROL XINAFOATE [Suspect]
     Active Substance: SALMETEROL XINAFOATE
     Dosage: 2 DOSAGE FORM, 1/DAY
  306. SALMETEROL XINAFOATE [Suspect]
     Active Substance: SALMETEROL XINAFOATE
     Dosage: 1 DOSAGE FORM, 2/DAY
  307. SALMETEROL XINAFOATE [Suspect]
     Active Substance: SALMETEROL XINAFOATE
     Dosage: 2 DOSAGE FORM, 1/DAY
  308. SALMETEROL XINAFOATE [Suspect]
     Active Substance: SALMETEROL XINAFOATE
     Dosage: 1 DOSAGE FORM, EVERY 12 HRS
  309. SALMETEROL XINAFOATE [Suspect]
     Active Substance: SALMETEROL XINAFOATE
     Dosage: 1 DOSAGE FORM, 2/DAY
  310. SALMETEROL XINAFOATE [Suspect]
     Active Substance: SALMETEROL XINAFOATE
     Dosage: 1 DOSAGE FORM, 2/DAY
  311. SALMETEROL XINAFOATE [Suspect]
     Active Substance: SALMETEROL XINAFOATE
     Dosage: 1 DOSAGE FORM, 2/DAY
  312. ASPIRIN DL-LYSINE\GLYCINE [Suspect]
     Active Substance: ASPIRIN DL-LYSINE\GLYCINE
     Indication: Product used for unknown indication
     Dosage: 20 MILLIGRAM, QD
  313. ASPIRIN [Suspect]
     Active Substance: ASPIRIN
     Indication: Product used for unknown indication
     Dosage: 200 MILLIGRAM, QD
  314. ASPIRIN [Suspect]
     Active Substance: ASPIRIN
     Indication: Product used for unknown indication
     Dosage: 250 MILLIGRAM, QD
  315. ASPIRIN [Suspect]
     Active Substance: ASPIRIN
     Dosage: 20 MILLIGRAM, QD
  316. ASPIRIN [Suspect]
     Active Substance: ASPIRIN
     Dosage: 100 MG
  317. ASPIRIN [Suspect]
     Active Substance: ASPIRIN
     Dosage: 200 MILLIGRAM, QD
  318. ASPIRIN [Suspect]
     Active Substance: ASPIRIN
     Dosage: 250 MILLIGRAM, QD
  319. ASPIRIN [Suspect]
     Active Substance: ASPIRIN
     Dosage: MORE THAN 100 MG
  320. ASPIRIN [Suspect]
     Active Substance: ASPIRIN
     Dosage: 250 MILLIGRAM, 1/DAY
  321. ASPIRIN [Suspect]
     Active Substance: ASPIRIN
     Dosage: 20 MILLIGRAM, 1/DAY
  322. ASPIRIN [Suspect]
     Active Substance: ASPIRIN
     Dosage: 20 MILLIGRAM, QD
  323. ASPIRIN [Suspect]
     Active Substance: ASPIRIN
     Dosage: MORE THAN 100 MG
  324. ASPIRIN [Suspect]
     Active Substance: ASPIRIN
     Dosage: 250 MILLIGRAM, 1/DAY
  325. ASPIRIN [Suspect]
     Active Substance: ASPIRIN
     Dosage: 20 MILLIGRAM, 1/DAY
  326. ASPIRIN [Suspect]
     Active Substance: ASPIRIN
     Dosage: 250 MG, QD
  327. ASPIRIN [Suspect]
     Active Substance: ASPIRIN
     Dosage: 20 MILLIGRAM, QD
  328. ASPIRIN [Suspect]
     Active Substance: ASPIRIN
     Dosage: 200 MG, QD
  329. ASPIRIN [Suspect]
     Active Substance: ASPIRIN
     Dosage: GREATER THAN 100 MG
     Route: 065
  330. ASPIRIN [Suspect]
     Active Substance: ASPIRIN
     Dosage: GREATER THAN 100 MG
     Route: 065
  331. ASPIRIN [Suspect]
     Active Substance: ASPIRIN
     Dosage: GREATER THAN 100 MG
     Route: 065
  332. ASPIRIN [Suspect]
     Active Substance: ASPIRIN
     Dosage: GREATER THAN 100 MG
     Route: 065
  333. ASPIRIN [Suspect]
     Active Substance: ASPIRIN
     Dosage: 20 MILLIGRAM, QD
  334. ASPIRIN [Suspect]
     Active Substance: ASPIRIN
     Dosage: 20 MILLIGRAM, 1/DAY
  335. ASPIRIN [Suspect]
     Active Substance: ASPIRIN
     Dosage: GREATER THAN 100 MG
     Route: 065
  336. ASPIRIN [Suspect]
     Active Substance: ASPIRIN
     Dosage: 250 MILLIGRAM, QD
  337. ASPIRIN [Suspect]
     Active Substance: ASPIRIN
     Dosage: 250 MILLIGRAM, QD
  338. ASPIRIN [Suspect]
     Active Substance: ASPIRIN
     Dosage: 20 MILLIGRAM, QD
  339. ASPIRIN [Suspect]
     Active Substance: ASPIRIN
     Dosage: 20 MILLIGRAM, QD
  340. ASPIRIN [Suspect]
     Active Substance: ASPIRIN
     Dosage: 20 MILLIGRAM, QD
  341. ASPIRIN [Suspect]
     Active Substance: ASPIRIN
     Dosage: 250 MILLIGRAM, QD
  342. ASPIRIN [Suspect]
     Active Substance: ASPIRIN
     Dosage: 250 MILLIGRAM, QD
  343. ASPIRIN [Suspect]
     Active Substance: ASPIRIN
     Dosage: GREATER THAN 100 MG
  344. RAMIPRIL [Suspect]
     Active Substance: RAMIPRIL
     Indication: Product used for unknown indication
     Dosage: 5 MG, QD5 MILLIGRAM, 1/DAY
  345. RAMIPRIL [Suspect]
     Active Substance: RAMIPRIL
     Dosage: 5 MG, QD5 MILLIGRAM, 1/DAY
  346. RAMIPRIL [Suspect]
     Active Substance: RAMIPRIL
     Dosage: 5 MG, QD
  347. RAMIPRIL [Suspect]
     Active Substance: RAMIPRIL
     Dosage: 5 MG, QD
  348. FUROSEMIDE [Suspect]
     Active Substance: FUROSEMIDE
     Indication: Product used for unknown indication
     Dosage: 40 MILLIGRAM, 1/DAY
  349. FUROSEMIDE [Suspect]
     Active Substance: FUROSEMIDE
     Indication: Product used for unknown indication
     Dosage: 40 MILLIGRAM, 1/DAY
  350. FUROSEMIDE [Suspect]
     Active Substance: FUROSEMIDE
     Dosage: 40 MILLIGRAM, 1/DAY
  351. FUROSEMIDE [Suspect]
     Active Substance: FUROSEMIDE
     Dosage: 40 MILLIGRAM, 1/DAY
  352. FUROSEMIDE [Suspect]
     Active Substance: FUROSEMIDE
     Dosage: 40 MG, QD
  353. FUROSEMIDE [Suspect]
     Active Substance: FUROSEMIDE
     Dosage: 40 MILLIGRAM, QD
  354. FUROSEMIDE [Suspect]
     Active Substance: FUROSEMIDE
     Dosage: 40 MILLIGRAM, 1/DAY
  355. FUROSEMIDE [Suspect]
     Active Substance: FUROSEMIDE
     Dosage: 40 MILLIGRAM, 1/DAY
  356. FUROSEMIDE [Suspect]
     Active Substance: FUROSEMIDE
     Dosage: 40 MILLIGRAM, 1/DAY
  357. FUROSEMIDE [Suspect]
     Active Substance: FUROSEMIDE
     Dosage: 40 MILLIGRAM, 1/DAY
  358. POLYETHYLENE GLYCOLS [Suspect]
     Active Substance: POLYETHYLENE GLYCOLS
     Indication: Product used for unknown indication
     Dosage: 2 DOSAGE FORM, QD
  359. POLYETHYLENE GLYCOLS [Suspect]
     Active Substance: POLYETHYLENE GLYCOLS
     Dosage: 2 MILLIGRAM, QD
  360. POLYETHYLENE GLYCOLS [Suspect]
     Active Substance: POLYETHYLENE GLYCOLS
     Dosage: 2 DF, QD
  361. CLONAZEPAM [Suspect]
     Active Substance: CLONAZEPAM
     Indication: Product used for unknown indication
     Dosage: 30 MILLIGRAM, 1/DAY
  362. CLONAZEPAM [Suspect]
     Active Substance: CLONAZEPAM
     Indication: Product used for unknown indication
     Dosage: 4 MG
  363. CLONAZEPAM [Suspect]
     Active Substance: CLONAZEPAM
     Dosage: 30 MG, QD
  364. CLONAZEPAM [Suspect]
     Active Substance: CLONAZEPAM
     Dosage: UNK UNK, QD
  365. CLONAZEPAM [Suspect]
     Active Substance: CLONAZEPAM
     Dosage: 4 MG
  366. CLONAZEPAM [Suspect]
     Active Substance: CLONAZEPAM
     Dosage: 30.000MG QD
  367. CLONAZEPAM [Suspect]
     Active Substance: CLONAZEPAM
     Dosage: FREQUENCY TIME: 1 FREQUENCY TIME UNIT: DAYS
  368. CLONAZEPAM [Suspect]
     Active Substance: CLONAZEPAM
     Dosage: 30 MILLIGRAM, 1/DAY
  369. CLONAZEPAM [Suspect]
     Active Substance: CLONAZEPAM
     Dosage: 30 MILLIGRAM, 1/DAY
  370. CLONAZEPAM [Suspect]
     Active Substance: CLONAZEPAM
     Dosage: FREQUENCY TIME: 1 FREQUENCY TIME UNIT: DAYS
  371. CLONAZEPAM [Suspect]
     Active Substance: CLONAZEPAM
     Dosage: 30 MILLIGRAM, 1/DAY
  372. CELECOXIB [Suspect]
     Active Substance: CELECOXIB
     Indication: Product used for unknown indication
     Dosage: UNK
  373. CELECOXIB [Suspect]
     Active Substance: CELECOXIB
     Indication: Product used for unknown indication
     Dosage: UNK
  374. CELECOXIB [Suspect]
     Active Substance: CELECOXIB
     Dosage: UNK
  375. CELECOXIB [Suspect]
     Active Substance: CELECOXIB
     Dosage: UNK
     Route: 065
  376. CELECOXIB [Suspect]
     Active Substance: CELECOXIB
     Dosage: UNK
     Route: 065
  377. CELECOXIB [Suspect]
     Active Substance: CELECOXIB
     Dosage: UNK
  378. CELECOXIB [Suspect]
     Active Substance: CELECOXIB
     Dosage: UNK
  379. CELECOXIB [Suspect]
     Active Substance: CELECOXIB
     Route: 065
  380. CELECOXIB [Suspect]
     Active Substance: CELECOXIB
     Dosage: UNK
     Route: 065
  381. CELECOXIB [Suspect]
     Active Substance: CELECOXIB
     Dosage: UNK
     Route: 065
  382. CELECOXIB [Suspect]
     Active Substance: CELECOXIB
     Dosage: UNK
     Route: 065
  383. CELECOXIB [Suspect]
     Active Substance: CELECOXIB
     Route: 065
  384. CELECOXIB [Suspect]
     Active Substance: CELECOXIB
  385. CELECOXIB [Suspect]
     Active Substance: CELECOXIB
  386. ASPIRIN LYSINE [Suspect]
     Active Substance: ASPIRIN LYSINE
     Indication: Product used for unknown indication
     Dosage: 20 MG, QD
  387. ASPIRIN LYSINE [Suspect]
     Active Substance: ASPIRIN LYSINE
     Indication: Product used for unknown indication
     Dosage: 20 MG, QD
  388. NITROGLYCERIN [Suspect]
     Active Substance: NITROGLYCERIN
     Indication: Product used for unknown indication
     Dosage: 10 MILLIGRAM, 1/DAY
  389. NITROGLYCERIN [Suspect]
     Active Substance: NITROGLYCERIN
     Indication: Product used for unknown indication
     Dosage: 10 MILLIGRAM, 1/DAY
  390. NITROGLYCERIN [Suspect]
     Active Substance: NITROGLYCERIN
     Dosage: UNK
  391. NITROGLYCERIN [Suspect]
     Active Substance: NITROGLYCERIN
     Dosage: UNK
     Route: 065
  392. NITROGLYCERIN [Suspect]
     Active Substance: NITROGLYCERIN
     Dosage: 10 MILLIGRAM, 1/DAY
  393. NITROGLYCERIN [Suspect]
     Active Substance: NITROGLYCERIN
     Dosage: 10 MILLIGRAM, 1/DAY
  394. NITROGLYCERIN [Suspect]
     Active Substance: NITROGLYCERIN
     Dosage: 10 MILLIGRAM, 1/DAY
  395. NITROGLYCERIN [Suspect]
     Active Substance: NITROGLYCERIN
     Dosage: 10 MILLIGRAM, 1/DAY
  396. NITROGLYCERIN [Suspect]
     Active Substance: NITROGLYCERIN
     Dosage: 10 MILLIGRAM, 1/DAY
  397. NITROGLYCERIN [Suspect]
     Active Substance: NITROGLYCERIN
     Dosage: 10 MILLIGRAM, 1/DAY
  398. CLOBAZAM [Suspect]
     Active Substance: CLOBAZAM
     Indication: Product used for unknown indication
     Dosage: 30 MILLIGRAM, QD
  399. CLOBAZAM [Suspect]
     Active Substance: CLOBAZAM
     Indication: Product used for unknown indication
     Dosage: 20 MG, QD
  400. CLOBAZAM [Suspect]
     Active Substance: CLOBAZAM
     Dosage: 90 MILLIGRAM, QD
  401. CLOBAZAM [Suspect]
     Active Substance: CLOBAZAM
     Dosage: 20 MG, QD
  402. CLOBAZAM [Suspect]
     Active Substance: CLOBAZAM
     Dosage: 10 MILLIGRAM, TID
  403. CLOBAZAM [Suspect]
     Active Substance: CLOBAZAM
     Dosage: 4 MILLIGRAM, QD
  404. CLOBAZAM [Suspect]
     Active Substance: CLOBAZAM
     Dosage: 10 MILLIGRAM, TID (3X/DAY (ONCE EVERY 8HOURS))
  405. CLOBAZAM [Suspect]
     Active Substance: CLOBAZAM
     Dosage: 20 MG, QD
  406. CLOBAZAM [Suspect]
     Active Substance: CLOBAZAM
     Dosage: 30 MG, Q8H
  407. CLOBAZAM [Suspect]
     Active Substance: CLOBAZAM
     Dosage: 10 MG, 3X/DAY (ONCE EVERY 8HOURS)
  408. CLOBAZAM [Suspect]
     Active Substance: CLOBAZAM
     Dosage: 20 MILLIGRAM, QD
  409. CLOBAZAM [Suspect]
     Active Substance: CLOBAZAM
     Dosage: 90 MILLIGRAM, QD/30 MG, TID
  410. CLOBAZAM [Suspect]
     Active Substance: CLOBAZAM
     Dosage: FREQUENCY TIME: 8 FREQUENCY TIME UNIT: HOURS
  411. CLOBAZAM [Suspect]
     Active Substance: CLOBAZAM
     Dosage: TID,10 MG, 3X/DAY (ONCE EVERY 8HOURS) LESS THAN/
  412. CLOBAZAM [Suspect]
     Active Substance: CLOBAZAM
     Dosage: FREQUENCY TIME: 1 FREQUENCY TIME UNIT: DAYS
  413. CLOBAZAM [Suspect]
     Active Substance: CLOBAZAM
     Dosage: FREQUENCY: 3 FREQUENCY TIME : 1 FREQUENCY TIME UNIT: DAYS
  414. CLOBAZAM [Suspect]
     Active Substance: CLOBAZAM
     Dosage: 4 MILLIGRAM, QD
  415. CLOBAZAM [Suspect]
     Active Substance: CLOBAZAM
     Dosage: 20 MG, QD
  416. TRIHEXYPHENIDYL HYDROCHLORIDE [Suspect]
     Active Substance: TRIHEXYPHENIDYL HYDROCHLORIDE
     Indication: Product used for unknown indication
     Dosage: 1 MG, QD
  417. TRIHEXYPHENIDYL HYDROCHLORIDE [Suspect]
     Active Substance: TRIHEXYPHENIDYL HYDROCHLORIDE
     Indication: Product used for unknown indication
     Dosage: 1 DF, QD
  418. TRIHEXYPHENIDYL HYDROCHLORIDE [Suspect]
     Active Substance: TRIHEXYPHENIDYL HYDROCHLORIDE
     Dosage: 1 MG, QD
  419. TRIHEXYPHENIDYL HYDROCHLORIDE [Suspect]
     Active Substance: TRIHEXYPHENIDYL HYDROCHLORIDE
     Dosage: 1 DF, QD
  420. TRIHEXYPHENIDYL HYDROCHLORIDE [Suspect]
     Active Substance: TRIHEXYPHENIDYL HYDROCHLORIDE
     Dosage: 1 DF, QD
  421. TRIHEXYPHENIDYL HYDROCHLORIDE [Suspect]
     Active Substance: TRIHEXYPHENIDYL HYDROCHLORIDE
     Dosage: 1 MILLIGRAM, QD
  422. TRIHEXYPHENIDYL HYDROCHLORIDE [Suspect]
     Active Substance: TRIHEXYPHENIDYL HYDROCHLORIDE
     Dosage: 20 MG,QD
  423. TRIHEXYPHENIDYL HYDROCHLORIDE [Suspect]
     Active Substance: TRIHEXYPHENIDYL HYDROCHLORIDE
     Dosage: 1 DF, QD
  424. TRIHEXYPHENIDYL HYDROCHLORIDE [Suspect]
     Active Substance: TRIHEXYPHENIDYL HYDROCHLORIDE
     Dosage: 1 MG, QD
  425. ASPIRIN LYSINE [Suspect]
     Active Substance: ASPIRIN LYSINE
     Indication: Product used for unknown indication
     Dosage: 20 MILLIGRAM, QD
  426. ASPIRIN LYSINE [Suspect]
     Active Substance: ASPIRIN LYSINE
     Dosage: 250 MILLIGRAM, QD
  427. ASPIRIN LYSINE [Suspect]
     Active Substance: ASPIRIN LYSINE
     Dosage: 20.000MG QD
  428. OMEPRAZOLE MAGNESIUM [Suspect]
     Active Substance: OMEPRAZOLE MAGNESIUM
     Indication: Product used for unknown indication
     Dosage: 20 MILLIGRAM
  429. OMEPRAZOLE MAGNESIUM [Suspect]
     Active Substance: OMEPRAZOLE MAGNESIUM
     Indication: Product used for unknown indication
     Dosage: UNK
     Route: 065
  430. OMEPRAZOLE MAGNESIUM [Suspect]
     Active Substance: OMEPRAZOLE MAGNESIUM
     Dosage: 20 MG, QD
  431. OMEPRAZOLE MAGNESIUM [Suspect]
     Active Substance: OMEPRAZOLE MAGNESIUM
     Dosage: 5 MG, QD
  432. ACETAMINOPHEN [Suspect]
     Active Substance: ACETAMINOPHEN
     Indication: Product used for unknown indication
     Dosage: 100 MG
  433. ACETAMINOPHEN [Suspect]
     Active Substance: ACETAMINOPHEN
     Indication: Product used for unknown indication
     Dosage: 200 MILLIGRAM, QD (100 MG, BID (ONCE EVERY 12HOURS))
  434. ACETAMINOPHEN [Suspect]
     Active Substance: ACETAMINOPHEN
     Indication: Product used for unknown indication
     Dosage: 2000 MG, QD
  435. ACETAMINOPHEN [Suspect]
     Active Substance: ACETAMINOPHEN
     Dosage: 400 MG, QD
  436. ACETAMINOPHEN [Suspect]
     Active Substance: ACETAMINOPHEN
     Dosage: 200 MG, QD
  437. ACETAMINOPHEN [Suspect]
     Active Substance: ACETAMINOPHEN
     Dosage: 400 MILLIGRAM (200 MG, BID)
  438. ACETAMINOPHEN [Suspect]
     Active Substance: ACETAMINOPHEN
     Dosage: UNK
  439. ACETAMINOPHEN [Suspect]
     Active Substance: ACETAMINOPHEN
     Dosage: 400 MILLIGRAM (200 MG, BID)
  440. ACETAMINOPHEN [Suspect]
     Active Substance: ACETAMINOPHEN
     Dosage: BID2X/DAY (ONCE EVERY 12HOURS) LESS THAN/
  441. ACETAMINOPHEN [Suspect]
     Active Substance: ACETAMINOPHEN
     Dosage: 200 MG, QD
  442. ACETAMINOPHEN [Suspect]
     Active Substance: ACETAMINOPHEN
     Dosage: 100 MG
  443. ACETAMINOPHEN [Suspect]
     Active Substance: ACETAMINOPHEN
     Dosage: 400 MG, QD
  444. ACETAMINOPHEN [Suspect]
     Active Substance: ACETAMINOPHEN
     Dosage: 2000 MG, QD
  445. ACETAMINOPHEN [Suspect]
     Active Substance: ACETAMINOPHEN
     Dosage: 100 MILLIGRAM,
  446. ACETAMINOPHEN [Suspect]
     Active Substance: ACETAMINOPHEN
     Dosage: 200 MILLIGRAMS, BID
  447. ACETAMINOPHEN [Suspect]
     Active Substance: ACETAMINOPHEN
     Dosage: 200 MG QD
  448. ACETAMINOPHEN [Suspect]
     Active Substance: ACETAMINOPHEN
     Dosage: 100 MG, BID (ONCE EVERY 12HOURS)
  449. ACETAMINOPHEN [Suspect]
     Active Substance: ACETAMINOPHEN
     Dosage: 1000 MG, 2X/DAY (ONCE EVERY 12HOURS)
  450. ACETAMINOPHEN [Suspect]
     Active Substance: ACETAMINOPHEN
     Dosage: 200 MG, BID
  451. ACETAMINOPHEN [Suspect]
     Active Substance: ACETAMINOPHEN
     Dosage: 1 DOSAGE FORM, Q12H (1000 MG, 2X/DAY (ONCE EVERY 12HOURS)
  452. ACETAMINOPHEN [Suspect]
     Active Substance: ACETAMINOPHEN
     Dosage: 1000 MG, 2X/DAY (ONCE EVERY 12HOURS)
  453. ACETAMINOPHEN [Suspect]
     Active Substance: ACETAMINOPHEN
     Dosage: 200 MILLIGRAM, QD (100 MG, BID (ONCE EVERY 12HOURS))
  454. CELECOXIB [Suspect]
     Active Substance: CELECOXIB
     Indication: Product used for unknown indication
     Dosage: UNK
     Route: 065
  455. CELECOXIB [Suspect]
     Active Substance: CELECOXIB
     Indication: Product used for unknown indication
     Dosage: UNK
     Route: 065
  456. CELECOXIB [Suspect]
     Active Substance: CELECOXIB
     Dosage: UNK
  457. OXYMETAZOLINE HYDROCHLORIDE\PREDNISOLONE SODIUM PHOSPHATE [Suspect]
     Active Substance: OXYMETAZOLINE HYDROCHLORIDE\PREDNISOLONE SODIUM PHOSPHATE
     Indication: Product used for unknown indication
     Dosage: 1 PUFF, QD
  458. OXYMETAZOLINE HYDROCHLORIDE\PREDNISOLONE SODIUM PHOSPHATE [Suspect]
     Active Substance: OXYMETAZOLINE HYDROCHLORIDE\PREDNISOLONE SODIUM PHOSPHATE
     Dosage: 1 DOSAGE FORM, 1X/DAY/1 PUFF, QD
  459. PROPAFENONE HYDROCHLORIDE [Suspect]
     Active Substance: PROPAFENONE HYDROCHLORIDE
     Indication: Product used for unknown indication
     Dosage: TIME INTERVAL: 0.33333333 DAYS: 30 MG, TID
  460. PROPAFENONE HYDROCHLORIDE [Suspect]
     Active Substance: PROPAFENONE HYDROCHLORIDE
     Indication: Product used for unknown indication
     Dosage: 30 MG, TID
  461. PROPAFENONE HYDROCHLORIDE [Suspect]
     Active Substance: PROPAFENONE HYDROCHLORIDE
     Dosage: 30 MG, TID
  462. PROPAFENONE HYDROCHLORIDE [Suspect]
     Active Substance: PROPAFENONE HYDROCHLORIDE
     Dosage: 10 MG, 3X/DAY (ONCE EVERY 8HOURS)
  463. PROPAFENONE HYDROCHLORIDE [Suspect]
     Active Substance: PROPAFENONE HYDROCHLORIDE
     Dosage: 30 MG, TID
  464. PROPAFENONE HYDROCHLORIDE [Suspect]
     Active Substance: PROPAFENONE HYDROCHLORIDE
     Dosage: 10 MG, 3X/DAY (ONCE EVERY 8HOURS)
  465. PROPAFENONE HYDROCHLORIDE [Suspect]
     Active Substance: PROPAFENONE HYDROCHLORIDE
     Dosage: TIME INTERVAL: 0.33333333 DAYS: 10 MG, 3X/DAY (ONCE EVERY 8HOURS)
  466. PEG 3350 [Suspect]
     Active Substance: POLYETHYLENE GLYCOL 3350
     Indication: Product used for unknown indication
     Dosage: 2 DOSAGE FORM, QD
  467. PEG 3350 [Suspect]
     Active Substance: POLYETHYLENE GLYCOL 3350
     Dosage: UNK
     Route: 065
  468. PEG 3350 [Suspect]
     Active Substance: POLYETHYLENE GLYCOL 3350
     Dosage: 2 DF, QD
  469. PEG 3350 [Suspect]
     Active Substance: POLYETHYLENE GLYCOL 3350
     Dosage: UNK
  470. OMEPRAZOLE [Suspect]
     Active Substance: OMEPRAZOLE
     Indication: Product used for unknown indication
     Dosage: 20 MILLIGRAM, QD
  471. OMEPRAZOLE [Suspect]
     Active Substance: OMEPRAZOLE
     Dosage: 20 MILLIGRAM, QD
  472. OMEPRAZOLE [Suspect]
     Active Substance: OMEPRAZOLE
     Dosage: 20 MG, DAILY
  473. OMEPRAZOLE [Suspect]
     Active Substance: OMEPRAZOLE
     Dosage: 20 MG, QD
  474. NITROGLYCERIN [Suspect]
     Active Substance: NITROGLYCERIN
     Indication: Product used for unknown indication
     Dosage: 10 MG QD
  475. NITROGLYCERIN [Suspect]
     Active Substance: NITROGLYCERIN
     Indication: Product used for unknown indication
     Dosage: UNK
     Route: 065
  476. NITROGLYCERIN [Suspect]
     Active Substance: NITROGLYCERIN
     Dosage: UNK
     Route: 065
  477. NITROGLYCERIN [Suspect]
     Active Substance: NITROGLYCERIN
     Dosage: 10 MG QD
  478. NITROGLYCERIN [Suspect]
     Active Substance: NITROGLYCERIN
     Dosage: 10 MG QD
  479. NITROGLYCERIN [Suspect]
     Active Substance: NITROGLYCERIN
     Dosage: 10 MG, QD
  480. NITROGLYCERIN [Suspect]
     Active Substance: NITROGLYCERIN
     Dosage: UNK
  481. NITROGLYCERIN [Suspect]
     Active Substance: NITROGLYCERIN
     Dosage: UNK
  482. NITROGLYCERIN [Suspect]
     Active Substance: NITROGLYCERIN
     Dosage: 10 MG, QD
  483. NITROGLYCERIN [Suspect]
     Active Substance: NITROGLYCERIN
     Dosage: 10 MG,QD
  484. NITROGLYCERIN [Suspect]
     Active Substance: NITROGLYCERIN
     Dosage: 10 MG QD
  485. NITROGLYCERIN [Suspect]
     Active Substance: NITROGLYCERIN
     Dosage: UNK
  486. NITROGLYCERIN [Suspect]
     Active Substance: NITROGLYCERIN
     Dosage: UNK
  487. NITROGLYCERIN [Suspect]
     Active Substance: NITROGLYCERIN
     Dosage: 10 MG QD
  488. NITROGLYCERIN [Suspect]
     Active Substance: NITROGLYCERIN
     Dosage: 10 MG QD
  489. NITROGLYCERIN [Suspect]
     Active Substance: NITROGLYCERIN
  490. NITROGLYCERIN [Suspect]
     Active Substance: NITROGLYCERIN
  491. NITROGLYCERIN [Suspect]
     Active Substance: NITROGLYCERIN
  492. NITROGLYCERIN [Suspect]
     Active Substance: NITROGLYCERIN
  493. NITROGLYCERIN [Suspect]
     Active Substance: NITROGLYCERIN
     Dosage: 10 MG,QD
  494. NITROGLYCERIN [Suspect]
     Active Substance: NITROGLYCERIN
  495. NITROGLYCERIN [Suspect]
     Active Substance: NITROGLYCERIN
     Dosage: 10 MG, QD
  496. NITROGLYCERIN [Suspect]
     Active Substance: NITROGLYCERIN
  497. NITROGLYCERIN [Suspect]
     Active Substance: NITROGLYCERIN
     Dosage: 10 MG, QD
  498. NITROGLYCERIN [Suspect]
     Active Substance: NITROGLYCERIN
  499. NITROGLYCERIN [Suspect]
     Active Substance: NITROGLYCERIN
     Dosage: 10 MG, QD
  500. NITROGLYCERIN [Suspect]
     Active Substance: NITROGLYCERIN
  501. NITROGLYCERIN [Suspect]
     Active Substance: NITROGLYCERIN
     Dosage: 10 MG,QD
  502. NITROGLYCERIN [Suspect]
     Active Substance: NITROGLYCERIN
  503. NITROGLYCERIN [Suspect]
     Active Substance: NITROGLYCERIN
     Dosage: 10 MILLIGRAM, 1/DAY
  504. NITROGLYCERIN [Suspect]
     Active Substance: NITROGLYCERIN
     Dosage: 10 MG,QD
  505. NITROGLYCERIN [Suspect]
     Active Substance: NITROGLYCERIN
     Dosage: UNK
  506. NITROGLYCERIN [Suspect]
     Active Substance: NITROGLYCERIN
     Dosage: UNK
  507. POLYETHYLENE GLYCOL 3350 [Suspect]
     Active Substance: POLYETHYLENE GLYCOL 3350
     Indication: Product used for unknown indication
     Dosage: 2 DOSAGE FORM, QD
  508. POLYETHYLENE GLYCOL 3350 [Suspect]
     Active Substance: POLYETHYLENE GLYCOL 3350
     Dosage: 2 DF,QD
  509. PROPRANOLOL HYDROCHLORIDE [Suspect]
     Active Substance: PROPRANOLOL HYDROCHLORIDE
     Indication: Product used for unknown indication
     Dosage: 20 MILLIGRAM, QD
  510. PROPRANOLOL HYDROCHLORIDE [Suspect]
     Active Substance: PROPRANOLOL HYDROCHLORIDE
     Dosage: 200 MILLIGRAM, QD (100 MILLIGRAM, BID)
  511. PROPRANOLOL HYDROCHLORIDE [Suspect]
     Active Substance: PROPRANOLOL HYDROCHLORIDE
     Dosage: 100 MILLIGRAM, Q12H (100 MILLIGRAM, BID)
  512. ASPIRIN LYSINE [Suspect]
     Active Substance: ASPIRIN LYSINE
     Indication: Product used for unknown indication
     Dosage: 20 MG,QD
  513. ASPIRIN LYSINE [Suspect]
     Active Substance: ASPIRIN LYSINE
     Dosage: 250 MG, QD
  514. ASPIRIN LYSINE [Suspect]
     Active Substance: ASPIRIN LYSINE
     Dosage: 20 MG, QD
  515. ALBUTEROL [Suspect]
     Active Substance: ALBUTEROL
     Indication: Product used for unknown indication
     Dosage: UNK
  516. ALBUTEROL SULFATE [Suspect]
     Active Substance: ALBUTEROL SULFATE
     Indication: Product used for unknown indication
     Dosage: FREQUENCY TIME: 1 FREQUENCY TIME UNIT: DAYS
  517. ALBUTEROL SULFATE [Suspect]
     Active Substance: ALBUTEROL SULFATE
     Indication: Product used for unknown indication
     Dosage: FREQUENCY TIME: 12 FREQUENCY TIME UNIT: HOURS
  518. ALBUTEROL SULFATE [Suspect]
     Active Substance: ALBUTEROL SULFATE
     Dosage: UNK
     Route: 065
  519. ALBUTEROL SULFATE [Suspect]
     Active Substance: ALBUTEROL SULFATE
     Dosage: UNK
     Route: 065
  520. ALBUTEROL SULFATE [Suspect]
     Active Substance: ALBUTEROL SULFATE
     Dosage: UNK
     Route: 065
  521. ALBUTEROL SULFATE [Suspect]
     Active Substance: ALBUTEROL SULFATE
     Dosage: 2 DF, QD
  522. ALBUTEROL SULFATE [Suspect]
     Active Substance: ALBUTEROL SULFATE
     Dosage: 1 DF, Q12H
     Route: 065
  523. ALBUTEROL SULFATE [Suspect]
     Active Substance: ALBUTEROL SULFATE
     Dosage: UNK
     Route: 065
  524. ALBUTEROL SULFATE [Suspect]
     Active Substance: ALBUTEROL SULFATE
     Dosage: 1.000DF Q12H
     Route: 065
  525. ALBUTEROL SULFATE [Suspect]
     Active Substance: ALBUTEROL SULFATE
     Route: 065
  526. ALBUTEROL SULFATE [Suspect]
     Active Substance: ALBUTEROL SULFATE
     Dosage: 1.000DF BID
     Route: 065
  527. ALBUTEROL SULFATE [Suspect]
     Active Substance: ALBUTEROL SULFATE
     Route: 065
  528. ALBUTEROL SULFATE [Suspect]
     Active Substance: ALBUTEROL SULFATE
     Route: 065
  529. ALBUTEROL SULFATE [Suspect]
     Active Substance: ALBUTEROL SULFATE
     Dosage: 1.000DF BID
     Route: 065
  530. ALBUTEROL SULFATE [Suspect]
     Active Substance: ALBUTEROL SULFATE
     Route: 065
  531. ALBUTEROL SULFATE [Suspect]
     Active Substance: ALBUTEROL SULFATE
     Dosage: 1 DF, Q12H
     Route: 065
  532. ALBUTEROL SULFATE [Suspect]
     Active Substance: ALBUTEROL SULFATE
     Dosage: FREQUENCY TIME: 12 FREQUENCY TIME UNIT: HOURS
  533. ALBUTEROL SULFATE [Suspect]
     Active Substance: ALBUTEROL SULFATE
     Dosage: FREQUENCY TIME: 1 FREQUENCY TIME UNIT: DAYS
  534. ALBUTEROL SULFATE [Suspect]
     Active Substance: ALBUTEROL SULFATE
     Dosage: FREQUENCY TIME: 12 FREQUENCY TIME UNIT: HOURS
  535. ALBUTEROL SULFATE [Suspect]
     Active Substance: ALBUTEROL SULFATE
     Dosage: FREQUENCY TIME: 1 FREQUENCY TIME UNIT: DAYS
  536. ASPIRIN LYSINE [Suspect]
     Active Substance: ASPIRIN LYSINE
     Indication: Product used for unknown indication
     Dosage: 20 MILLIGRAM, 1/DAY
  537. ASPIRIN LYSINE [Suspect]
     Active Substance: ASPIRIN LYSINE
     Indication: Product used for unknown indication
     Dosage: UNK
  538. ASPIRIN LYSINE [Suspect]
     Active Substance: ASPIRIN LYSINE
     Route: 065
  539. ASPIRIN LYSINE [Suspect]
     Active Substance: ASPIRIN LYSINE
     Dosage: UNK
  540. ASPIRIN LYSINE [Suspect]
     Active Substance: ASPIRIN LYSINE
     Dosage: 20 MILLIGRAM, 1/DAY
  541. ASPIRIN LYSINE [Suspect]
     Active Substance: ASPIRIN LYSINE
     Dosage: UNK
  542. POLYETHYLENE GLYCOLS [Suspect]
     Active Substance: POLYETHYLENE GLYCOLS
     Indication: Product used for unknown indication
     Dosage: 2 DOSAGE FORM, 1/DAY
  543. POLYETHYLENE GLYCOLS [Suspect]
     Active Substance: POLYETHYLENE GLYCOLS
     Dosage: UNK
     Route: 065
  544. PREDNAZOLINE [Suspect]
     Active Substance: PREDNAZOLINE
     Indication: Product used for unknown indication
     Dosage: 1 DF, QD(1 DF, 1X/DAY/1 PUFF, QD)
  545. ESOMEPRAZOLE SODIUM [Suspect]
     Active Substance: ESOMEPRAZOLE SODIUM
     Indication: Product used for unknown indication
     Dosage: 20 MG, QD
  546. ESOMEPRAZOLE SODIUM [Suspect]
     Active Substance: ESOMEPRAZOLE SODIUM
     Indication: Product used for unknown indication
     Dosage: 20 MG, QD
  547. SEREVENT DISKUS [Suspect]
     Active Substance: SALMETEROL XINAFOATE
     Indication: Product used for unknown indication
     Dosage: 1 DOSAGE FORM, BID ((1 PUFF) (ONCE EVERY 12HOURS))
  548. SEREVENT DISKUS [Suspect]
     Active Substance: SALMETEROL XINAFOATE
     Dosage: 4 DOSAGE FORM, QD
     Route: 065
  549. SEREVENT DISKUS [Suspect]
     Active Substance: SALMETEROL XINAFOATE
     Dosage: 4 DOSAGE FORM, QD
     Route: 065
  550. SEREVENT DISKUS [Suspect]
     Active Substance: SALMETEROL XINAFOATE
     Dosage: 2 DF, QD
     Route: 065
  551. NITROGLYCERIN [Suspect]
     Active Substance: NITROGLYCERIN
     Indication: Product used for unknown indication
     Dosage: 10 MG, QD
  552. NITROGLYCERIN [Suspect]
     Active Substance: NITROGLYCERIN
     Indication: Product used for unknown indication
     Dosage: 10 MG, QD
     Route: 065
  553. NITROGLYCERIN [Suspect]
     Active Substance: NITROGLYCERIN
     Dosage: UNK
  554. NITROGLYCERIN [Suspect]
     Active Substance: NITROGLYCERIN
     Dosage: UNKNOWN
     Route: 065
  555. NITROGLYCERIN [Suspect]
     Active Substance: NITROGLYCERIN
     Dosage: UNK
     Route: 065
  556. NITROGLYCERIN [Suspect]
     Active Substance: NITROGLYCERIN
     Dosage: UNKNOWN
  557. NITROGLYCERIN [Suspect]
     Active Substance: NITROGLYCERIN
     Dosage: 10 MG, QD
  558. NITROGLYCERIN [Suspect]
     Active Substance: NITROGLYCERIN
     Dosage: UNKNOWN
  559. NITROGLYCERIN [Suspect]
     Active Substance: NITROGLYCERIN
     Dosage: 10 MG, QD
  560. CLOBAZAM [Suspect]
     Active Substance: CLOBAZAM
     Indication: Product used for unknown indication
     Dosage: 10 MG, Q8H (3X/DAY ONCE EVERY 8HOURS)
  561. NITROGLYCERIN [Suspect]
     Active Substance: NITROGLYCERIN
     Indication: Product used for unknown indication
     Dosage: 10 MILLIGRAM, 1/DAY
  562. NITROGLYCERIN [Suspect]
     Active Substance: NITROGLYCERIN
     Indication: Product used for unknown indication
     Dosage: 10 MILLIGRAM, 1/DAY
  563. NITROGLYCERIN [Suspect]
     Active Substance: NITROGLYCERIN
     Dosage: 10 MILLIGRAM, QD
  564. Aturgyl [Concomitant]
     Indication: Product used for unknown indication
     Dosage: UNK
     Route: 065
  565. OXYGEN [Concomitant]
     Active Substance: OXYGEN
     Indication: Product used for unknown indication
     Dosage: UNK
  566. OXYGEN [Concomitant]
     Active Substance: OXYGEN
     Indication: Product used for unknown indication
     Dosage: UNK
     Route: 065
  567. OXYGEN [Concomitant]
     Active Substance: OXYGEN
     Dosage: UNK
     Route: 065
  568. OXYGEN [Concomitant]
     Active Substance: OXYGEN
     Dosage: UNKNOWN
     Route: 065
  569. OXYGEN [Concomitant]
     Active Substance: OXYGEN
     Dosage: UNKNOWN
     Route: 065
  570. OXYGEN [Concomitant]
     Active Substance: OXYGEN
     Dosage: UNK
     Route: 065
  571. OXYGEN [Concomitant]
     Active Substance: OXYGEN
     Dosage: UNK
     Route: 065
  572. OXYGEN [Concomitant]
     Active Substance: OXYGEN
     Dosage: UNK
     Route: 065
  573. OXYGEN [Concomitant]
     Active Substance: OXYGEN
     Dosage: UNK
     Route: 065
  574. OXYGEN [Concomitant]
     Active Substance: OXYGEN
     Dosage: UNK
     Route: 065
  575. OXYGEN [Concomitant]
     Active Substance: OXYGEN
     Dosage: UNK
     Route: 065
  576. OXYGEN [Concomitant]
     Active Substance: OXYGEN
     Dosage: UNKNOWN
     Route: 065
  577. OXYGEN [Concomitant]
     Active Substance: OXYGEN
     Dosage: UNK
  578. OXYGEN [Concomitant]
     Active Substance: OXYGEN
     Dosage: UNK
  579. OXYGEN [Concomitant]
     Active Substance: OXYGEN
     Dosage: UNK
  580. OXYGEN [Concomitant]
     Active Substance: OXYGEN
     Dosage: UNK
  581. OXYGEN [Concomitant]
     Active Substance: OXYGEN
     Dosage: UNKNOWN
     Route: 065
  582. OXYGEN [Concomitant]
     Active Substance: OXYGEN
     Dosage: UNK
  583. OXYGEN [Concomitant]
     Active Substance: OXYGEN
     Dosage: UNK
  584. OXYGEN [Concomitant]
     Active Substance: OXYGEN
  585. OXYGEN [Concomitant]
     Active Substance: OXYGEN
  586. OXYGEN [Concomitant]
     Active Substance: OXYGEN
     Dosage: UNK
  587. OXYGEN [Concomitant]
     Active Substance: OXYGEN
  588. OXYGEN [Concomitant]
     Active Substance: OXYGEN
  589. OXYGEN [Concomitant]
     Active Substance: OXYGEN
  590. OXYGEN [Concomitant]
     Active Substance: OXYGEN
  591. OXYGEN [Concomitant]
     Active Substance: OXYGEN
  592. OXYGEN [Concomitant]
     Active Substance: OXYGEN
  593. OXYGEN [Concomitant]
     Active Substance: OXYGEN
  594. OXYGEN [Concomitant]
     Active Substance: OXYGEN
  595. OXYGEN [Concomitant]
     Active Substance: OXYGEN
     Dosage: UNK
  596. OXYGEN [Concomitant]
     Active Substance: OXYGEN
     Dosage: UNKNOWN
  597. OXYGEN [Concomitant]
     Active Substance: OXYGEN
     Dosage: UNKNOWN
  598. Deturgylone [Concomitant]
     Indication: Product used for unknown indication
     Dosage: 1 DOSAGE FORM, QD
  599. Deturgylone [Concomitant]
     Dosage: 1 DOSAGE FORM, 1/DAY
  600. Deturgylone [Concomitant]
     Dosage: 1 DOSAGE FORM, 1/DAY
  601. Deturgylone [Concomitant]
     Dosage: 1 DOSAGE FORM, 1/DAY
  602. Deturgylone [Concomitant]
     Dosage: 1 DOSAGE FORM, 1/DAY
  603. OXYCODONE HYDROCHLORIDE\OXYCODONE TEREPHTHALATE [Concomitant]
     Active Substance: OXYCODONE HYDROCHLORIDE\OXYCODONE TEREPHTHALATE
     Indication: Product used for unknown indication
     Dosage: 1 DF, QD 1 DF, 1X/DAY/1 PUFF, QD
  604. DETURGYLONE [Concomitant]
     Indication: Product used for unknown indication
     Dosage: 1 DF, QD
  605. DETURGYLONE [Concomitant]
     Indication: Product used for unknown indication
     Dosage: 1 DF, QD
  606. DETURGYLONE [Concomitant]
     Dosage: 1 DF, QD
  607. DETURGYLONE [Concomitant]
     Dosage: 1 DF, QD
  608. DETURGYLONE [Concomitant]
     Dosage: 1 DF, QD
  609. DETURGYLONE [Concomitant]
     Dosage: 1 DF, QD
  610. DETURGYLONE [Concomitant]
     Dosage: 1 DF, QD
  611. DETURGYLONE [Concomitant]
     Dosage: 1 DF, QD
  612. DETURGYLONE [Concomitant]
     Dosage: 1 DF, QD
  613. DETURGYLONE [Concomitant]
     Dosage: 1 DF, QD
  614. DETURGYLONE [Concomitant]
     Dosage: 1 DF, QD
  615. DETURGYLONE [Concomitant]
     Dosage: 1 DF, QD
  616. LASIX [Suspect]
     Active Substance: FUROSEMIDE
     Indication: Product used for unknown indication
     Dosage: 40 MG, QD
  617. LASIX [Suspect]
     Active Substance: FUROSEMIDE
     Indication: Product used for unknown indication
     Dosage: 40 MG, QD
  618. LASIX [Suspect]
     Active Substance: FUROSEMIDE
     Dosage: 40 MG,QD
  619. LASIX [Suspect]
     Active Substance: FUROSEMIDE
     Dosage: 40 MG, QD
  620. LASIX [Suspect]
     Active Substance: FUROSEMIDE
     Dosage: 40 MG, QD
  621. SIMVASTATIN [Suspect]
     Active Substance: SIMVASTATIN
     Indication: Product used for unknown indication
     Dosage: 20 MILLIGRAM, QD
  622. SIMVASTATIN [Suspect]
     Active Substance: SIMVASTATIN
     Indication: Product used for unknown indication
     Dosage: 20 MG,QD
  623. SIMVASTATIN [Suspect]
     Active Substance: SIMVASTATIN
     Dosage: FREQUENCY TIME: 1 FREQUENCY TIME UNIT: DAYS
  624. SIMVASTATIN [Suspect]
     Active Substance: SIMVASTATIN
     Dosage: 20 MG,QD
  625. SIMVASTATIN [Suspect]
     Active Substance: SIMVASTATIN
     Dosage: FREQUENCY TIME: 1 FREQUENCY TIME UNIT: DAYS
  626. SIMVASTATIN [Suspect]
     Active Substance: SIMVASTATIN
     Dosage: 20 MG,QD
  627. SIMVASTATIN [Suspect]
     Active Substance: SIMVASTATIN
     Dosage: 20 MG,QD
  628. ALBUTEROL [Suspect]
     Active Substance: ALBUTEROL
     Indication: Product used for unknown indication
     Dosage: 2 DOSAGE FORM, 1/DAY
  629. ALBUTEROL [Suspect]
     Active Substance: ALBUTEROL
     Indication: Product used for unknown indication
     Dosage: UNK
  630. ALBUTEROL [Suspect]
     Active Substance: ALBUTEROL
     Dosage: 2 DOSAGE FORM, QD
  631. ALBUTEROL [Suspect]
     Active Substance: ALBUTEROL
     Dosage: 2 DOSAGE FORM, QD
  632. ALBUTEROL [Suspect]
     Active Substance: ALBUTEROL
     Dosage: 1 DF, QD
  633. ALBUTEROL [Suspect]
     Active Substance: ALBUTEROL
     Dosage: UNK
  634. ALBUTEROL [Suspect]
     Active Substance: ALBUTEROL
     Dosage: UNK
  635. ALBUTEROL [Suspect]
     Active Substance: ALBUTEROL
     Dosage: 2 DOSAGE FORM, QD
  636. ALBUTEROL [Suspect]
     Active Substance: ALBUTEROL
     Dosage: 1 DOSAGE FORM, BID
  637. ALBUTEROL [Suspect]
     Active Substance: ALBUTEROL
     Dosage: 2 DF, QD
  638. ALBUTEROL [Suspect]
     Active Substance: ALBUTEROL
     Dosage: 2 DOSAGE FORM, QD
  639. ALBUTEROL [Suspect]
     Active Substance: ALBUTEROL
     Dosage: 2 DOSAGE FORM
     Route: 065
  640. ALBUTEROL [Suspect]
     Active Substance: ALBUTEROL
     Dosage: 2.000DF QD
     Route: 065
  641. ALBUTEROL [Suspect]
     Active Substance: ALBUTEROL
     Dosage: 2.000DF QD
     Route: 065
  642. ALBUTEROL [Suspect]
     Active Substance: ALBUTEROL
     Dosage: 2 DOSAGE FORM
     Route: 065
  643. ALBUTEROL [Suspect]
     Active Substance: ALBUTEROL
     Dosage: 2 DOSAGE FORM
     Route: 065
  644. ALBUTEROL [Suspect]
     Active Substance: ALBUTEROL
     Dosage: 2.000DF QD
     Route: 065
  645. ALBUTEROL [Suspect]
     Active Substance: ALBUTEROL
     Dosage: 1 DF, BID
  646. ALBUTEROL [Suspect]
     Active Substance: ALBUTEROL
     Dosage: 1.000DF QD
     Route: 065
  647. ALBUTEROL [Suspect]
     Active Substance: ALBUTEROL
     Dosage: UNK
     Route: 065
  648. ALBUTEROL [Suspect]
     Active Substance: ALBUTEROL
     Dosage: 1 DOSAGE FORM, BID
  649. ALBUTEROL [Suspect]
     Active Substance: ALBUTEROL
     Dosage: 2 DOSAGE FORM, QD
  650. ALBUTEROL [Suspect]
     Active Substance: ALBUTEROL
     Dosage: 2 DOSAGE FORM, QD
  651. ALBUTEROL [Suspect]
     Active Substance: ALBUTEROL
     Dosage: 2 DF, QD
  652. ALBUTEROL [Suspect]
     Active Substance: ALBUTEROL
     Dosage: 1 DF, QD
  653. ALBUTEROL [Suspect]
     Active Substance: ALBUTEROL
     Dosage: UNK
  654. ALBUTEROL [Suspect]
     Active Substance: ALBUTEROL
     Dosage: UNK
  655. ALBUTEROL [Suspect]
     Active Substance: ALBUTEROL
     Dosage: 2 DOSAGE FORM, QD
  656. ZOCOR [Suspect]
     Active Substance: SIMVASTATIN
     Dosage: 20 MG, QD
  657. ZOCOR [Suspect]
     Active Substance: SIMVASTATIN
     Dosage: 20 MG,QD
  658. ZOCOR [Suspect]
     Active Substance: SIMVASTATIN
     Dosage: 20 MG, QD
  659. OXYMETAZOLINE HYDROCHLORIDE\PREDNISOLONE SODIUM PHOSPHATE [Concomitant]
     Active Substance: OXYMETAZOLINE HYDROCHLORIDE\PREDNISOLONE SODIUM PHOSPHATE
     Indication: Product used for unknown indication
     Dosage: 1 DF, 1X/DAY/1 PUFF, QD
  660. OXYMETAZOLINE HYDROCHLORIDE\PREDNISOLONE SODIUM PHOSPHATE [Concomitant]
     Active Substance: OXYMETAZOLINE HYDROCHLORIDE\PREDNISOLONE SODIUM PHOSPHATE
     Dosage: 1 DF, 1X/DAY/1 PUFF, QD

REACTIONS (13)
  - Cerebral artery thrombosis [Fatal]
  - Ischaemic stroke [Fatal]
  - Nausea [Fatal]
  - Respiratory distress [Fatal]
  - Respiratory failure [Fatal]
  - Areflexia [Fatal]
  - Brain scan abnormal [Fatal]
  - Hemiplegia [Fatal]
  - Cerebrovascular accident [Fatal]
  - Disease recurrence [Fatal]
  - Facial paralysis [Fatal]
  - Off label use [Fatal]
  - Product use issue [Fatal]
